FAERS Safety Report 8835608 (Version 1)
Quarter: 2012Q4

REPORT INFORMATION
  Report Type: 
  Country: AU (occurrence: AU)
  Receive Date: 20121011
  Receipt Date: 20121011
  Transmission Date: 20130627
  Serious: Yes (Other)
  Sender: FDA-Public Use
  Company Number: PHHY2012AU089178

PATIENT
  Sex: Female

DRUGS (5)
  1. FEMARA [Suspect]
  2. THYROXINE [Concomitant]
  3. NOTEN [Concomitant]
  4. NEXIUM [Concomitant]
  5. CALCIUM [Concomitant]

REACTIONS (4)
  - Deafness unilateral [Unknown]
  - Ear canal injury [Unknown]
  - Nausea [Unknown]
  - Dizziness [Unknown]
